FAERS Safety Report 23845040 (Version 1)
Quarter: 2024Q2

REPORT INFORMATION
  Report Type: Spontaneous
  Country: US (occurrence: US)
  Receive Date: 20240511
  Receipt Date: 20240511
  Transmission Date: 20240716
  Serious: No
  Sender: FDA-Public Use
  Company Number: US-CIPLA LTD.-2023US04999

PATIENT

DRUGS (3)
  1. ALBUTEROL [Suspect]
     Active Substance: ALBUTEROL
     Indication: Product used for unknown indication
     Dosage: UNK
     Route: 065
  2. ALBUTEROL [Suspect]
     Active Substance: ALBUTEROL
     Dosage: UNK 2 PUFFS (180 MCG), UNK
     Route: 065
     Dates: start: 202306
  3. ALBUTEROL [Suspect]
     Active Substance: ALBUTEROL
     Dosage: UNK 2 PUFFS EARLIER BUT THEN STARTED TAKING 4 PUFFS
     Route: 065
     Dates: start: 202307

REACTIONS (4)
  - Incorrect dose administered by device [Unknown]
  - Device delivery system issue [Unknown]
  - Intentional product use issue [Unknown]
  - Product cleaning inadequate [Unknown]

NARRATIVE: CASE EVENT DATE: 20230101
